FAERS Safety Report 13606749 (Version 1)
Quarter: 2017Q2

REPORT INFORMATION
  Report Type: Spontaneous
  Country: BR (occurrence: BR)
  Receive Date: 20170602
  Receipt Date: 20170602
  Transmission Date: 20170830
  Serious: Yes (Hospitalization)
  Sender: FDA-Public Use
  Company Number: BR-BAXTER-2017BAX021954

PATIENT
  Age: 34 Year
  Sex: Female
  Weight: 68 kg

DRUGS (8)
  1. FAULDVINCRI [Suspect]
     Active Substance: VINCRISTINE SULFATE
     Dosage: SECOND CYCLE
     Route: 042
     Dates: start: 20170303
  2. ADRIBLASTIN [Suspect]
     Active Substance: DOXORUBICIN HYDROCHLORIDE
     Dosage: SECOND CYCLE
     Route: 042
     Dates: start: 20170303
  3. GENUXAL [Suspect]
     Active Substance: CYCLOPHOSPHAMIDE
     Indication: T-CELL LYMPHOMA
     Dosage: FIRST CYCLE
     Route: 042
  4. ADRIBLASTIN [Suspect]
     Active Substance: DOXORUBICIN HYDROCHLORIDE
     Indication: T-CELL LYMPHOMA
     Dosage: FIRST CYCLE
     Route: 042
  5. TEVAETOPO [Suspect]
     Active Substance: ETOPOSIDE
     Dosage: SECOND CYCLE
     Route: 042
     Dates: start: 20170303
  6. TEVAETOPO [Suspect]
     Active Substance: ETOPOSIDE
     Indication: T-CELL LYMPHOMA
     Dosage: FIRST CYCLE
     Route: 042
  7. GENUXAL [Suspect]
     Active Substance: CYCLOPHOSPHAMIDE
     Dosage: SECOND CYCLE
     Route: 042
     Dates: start: 20170303
  8. FAULDVINCRI [Suspect]
     Active Substance: VINCRISTINE SULFATE
     Indication: T-CELL LYMPHOMA
     Dosage: FIRST CYCLE
     Route: 042

REACTIONS (2)
  - Haemorrhoids [Recovered/Resolved]
  - Febrile neutropenia [Recovered/Resolved]

NARRATIVE: CASE EVENT DATE: 20170312
